FAERS Safety Report 8457440-3 (Version None)
Quarter: 2012Q2

REPORT INFORMATION
  Report Type: 
  Country: None (occurrence: None)
  Receive Date: 20120621
  Receipt Date: 20120614
  Transmission Date: 20120825
  Serious: Yes (Other)
  Sender: FDA-Public Use
  Company Number: JP-MERCK-1206USA02974

PATIENT
  Age: 72 Year
  Sex: Female

DRUGS (2)
  1. FOSAMAX [Suspect]
     Indication: OSTEOPOROSIS
     Route: 048
     Dates: start: 20110525, end: 20120401
  2. ZOLPIDEM TARTRATE [Concomitant]
     Indication: INSOMNIA
     Route: 048

REACTIONS (3)
  - PAIN IN EXTREMITY [None]
  - BLOOD CREATINE PHOSPHOKINASE INCREASED [None]
  - MALAISE [None]
